FAERS Safety Report 17301287 (Version 3)
Quarter: 2020Q1

REPORT INFORMATION
  Report Type: Spontaneous
  Country: DE (occurrence: DE)
  Receive Date: 20200122
  Receipt Date: 20200317
  Transmission Date: 20200409
  Serious: Yes (Hospitalization, Other)
  Sender: FDA-Public Use
  Company Number: DE-AMGEN-DEUSP2020005989

PATIENT
  Age: 48 Year
  Sex: Female
  Weight: 93 kg

DRUGS (2)
  1. CALCIUM [Concomitant]
     Active Substance: CALCIUM
  2. PROLIA [Suspect]
     Active Substance: DENOSUMAB
     Indication: OSTEOPOROSIS POSTMENOPAUSAL
     Dosage: 60 MILLIGRAM, Q6MO
     Route: 058
     Dates: start: 201407, end: 20190731

REACTIONS (13)
  - Procedural pain [Recovered/Resolved]
  - Spinal stenosis [Recovered/Resolved]
  - Bronchitis [Unknown]
  - Meralgia paraesthetica [Unknown]
  - Kyphosis [Unknown]
  - Sciatica [Recovered/Resolved]
  - Cervical radiculopathy [Recovered/Resolved]
  - Peroneal nerve palsy [Not Recovered/Not Resolved]
  - Myelopathy [Unknown]
  - Extradural neoplasm [Recovered/Resolved]
  - Meningioma [Not Recovered/Not Resolved]
  - Osteochondrosis [Unknown]
  - Spinal cord compression [Recovered/Resolved]

NARRATIVE: CASE EVENT DATE: 201606
